FAERS Safety Report 5953962-5 (Version None)
Quarter: 2008Q4

REPORT INFORMATION
  Report Type: 
  Country: None (occurrence: None)
  Receive Date: 20081114
  Receipt Date: 20081031
  Transmission Date: 20090506
  Serious: Yes (Hospitalization, Other)
  Sender: FDA-Public Use
  Company Number: DE-PFIZER INC-2008090861

PATIENT
  Age: 42 Year
  Sex: Male

DRUGS (9)
  1. ZOLOFT [Suspect]
     Indication: DEPRESSION
  2. SORTIS [Interacting]
     Dosage: DAILY DOSE:10MG
     Route: 048
  3. ZELDOX (CAPSULES) [Interacting]
     Dosage: DAILY DOSE:240MG
     Dates: start: 20060715
  4. TILIDINE [Suspect]
  5. LAMOTRIGINE [Interacting]
     Dosage: DAILY DOSE:200MG
     Dates: start: 20060805
  6. CIPRALEX [Interacting]
     Dosage: DAILY DOSE:60MG
     Dates: start: 20060629
  7. SEROQUEL [Interacting]
     Dosage: DAILY DOSE:700MG
     Dates: start: 20060705
  8. CYMBALTA [Suspect]
     Dates: start: 20060719, end: 20060101
  9. QUILONUM - SLOW RELEASE [Concomitant]

REACTIONS (3)
  - DRUG INTERACTION [None]
  - LIVER DISORDER [None]
  - TRANSAMINASES INCREASED [None]
